FAERS Safety Report 16990571 (Version 3)
Quarter: 2019Q4

REPORT INFORMATION
  Report Type: Spontaneous
  Country: HU (occurrence: HU)
  Receive Date: 20191104
  Receipt Date: 20191227
  Transmission Date: 20200122
  Serious: Yes (Other)
  Sender: FDA-Public Use
  Company Number: HU-B.I. PHARMACEUTICALS,INC./RIDGEFIELD-2019-12-110259

PATIENT
  Age: 36 Year
  Sex: Female

DRUGS (5)
  1. DICLAC [DICLOFENAC SODIUM] [Suspect]
     Active Substance: DICLOFENAC SODIUM
     Indication: PRODUCT USED FOR UNKNOWN INDICATION
     Route: 065
  2. NAPROXEN. [Concomitant]
     Active Substance: NAPROXEN
     Indication: PRODUCT USED FOR UNKNOWN INDICATION
     Dosage: 550 MG, BID
     Route: 065
  3. MELOXICAM. [Suspect]
     Active Substance: MELOXICAM
     Indication: PRODUCT USED FOR UNKNOWN INDICATION
     Route: 065
     Dates: start: 2017
  4. SECUKINUMAB. [Suspect]
     Active Substance: SECUKINUMAB
     Indication: PRODUCT USED FOR UNKNOWN INDICATION
     Dosage: 150 MG, QW
     Route: 065
     Dates: start: 201907
  5. INFLIXIMAB [Suspect]
     Active Substance: INFLIXIMAB
     Indication: PRODUCT USED FOR UNKNOWN INDICATION
     Dosage: 400 MG
     Route: 065
     Dates: start: 201802, end: 201811

REACTIONS (11)
  - Papule [Unknown]
  - Dyshidrotic eczema [Unknown]
  - Pruritus [Unknown]
  - Urinary tract infection [Unknown]
  - Pustular psoriasis [Unknown]
  - Ankylosing spondylitis [Recovering/Resolving]
  - Hand dermatitis [Unknown]
  - Psoriasis [Unknown]
  - Nail disorder [Unknown]
  - Drug ineffective [Unknown]
  - Palmar erythema [Unknown]

NARRATIVE: CASE EVENT DATE: 201805
